FAERS Safety Report 5726277-8 (Version None)
Quarter: 2008Q2

REPORT INFORMATION
  Report Type: 
  Country: None (occurrence: None)
  Receive Date: 20080501
  Receipt Date: 20080501
  Transmission Date: 20081010
  Serious: No
  Sender: FDA-Public Use
  Company Number: None

PATIENT
  Age: 73 Year
  Weight: 81.1939 kg

DRUGS (1)
  1. AVELOX [Suspect]
     Indication: ABDOMINAL INFECTION
     Dosage: INTRAVENOUS; 400.0
     Route: 042
     Dates: start: 20080422, end: 20080422

REACTIONS (2)
  - INFUSION SITE ERYTHEMA [None]
  - VEIN DISCOLOURATION [None]
